FAERS Safety Report 19746153 (Version 1)
Quarter: 2021Q3

REPORT INFORMATION
  Report Type: Spontaneous
  Country: US (occurrence: US)
  Receive Date: 20210825
  Receipt Date: 20210825
  Transmission Date: 20211014
  Serious: No
  Sender: FDA-Public Use
  Company Number: US-MYLANLABS-2021M1047707

PATIENT
  Age: 82 Year
  Sex: Male
  Weight: 73 kg

DRUGS (1)
  1. ETOPOSIDE CAPSULES, USP [Suspect]
     Active Substance: ETOPOSIDE
     Indication: SMALL CELL CARCINOMA
     Dosage: UNK

REACTIONS (1)
  - Product storage error [Not Recovered/Not Resolved]

NARRATIVE: CASE EVENT DATE: 20210726
